FAERS Safety Report 19754916 (Version 1)
Quarter: 2021Q3

REPORT INFORMATION
  Report Type: Spontaneous
  Country: US (occurrence: US)
  Receive Date: 20210827
  Receipt Date: 20210827
  Transmission Date: 20211014
  Serious: No
  Sender: FDA-Public Use
  Company Number: None

PATIENT
  Age: 57 Year
  Sex: Female

DRUGS (2)
  1. CYCLOPHOSPHAMIDE. [Suspect]
     Active Substance: CYCLOPHOSPHAMIDE
     Indication: MONOCLONAL GAMMOPATHY
     Dosage: ?          OTHER FREQUENCY:WK1,8,15,22/28CYCL;?
     Route: 048
     Dates: start: 20210518
  2. CYCLOPHOSPHAMIDE. [Suspect]
     Active Substance: CYCLOPHOSPHAMIDE
     Indication: LICHEN MYXOEDEMATOSUS
     Dosage: ?          OTHER FREQUENCY:WK1,8,15,22/28CYCL;?
     Route: 048
     Dates: start: 20210518

REACTIONS (1)
  - Anaphylactic shock [None]
